FAERS Safety Report 17718554 (Version 1)
Quarter: 2020Q2

REPORT INFORMATION
  Report Type: Report from Study
  Country: US (occurrence: US)
  Receive Date: 20200428
  Receipt Date: 20200428
  Transmission Date: 20200714
  Serious: Yes (Other)
  Sender: FDA-Public Use
  Company Number: US-ROCHE-2568475

PATIENT
  Sex: Male

DRUGS (9)
  1. TYLENOL [Concomitant]
     Active Substance: ACETAMINOPHEN
     Route: 048
     Dates: start: 20200212
  2. PRAVASTATIN SODIUM. [Concomitant]
     Active Substance: PRAVASTATIN SODIUM
     Route: 048
     Dates: start: 20200212
  3. ZELBORAF [Suspect]
     Active Substance: VEMURAFENIB
     Indication: MALIGNANT MELANOMA
     Route: 048
  4. LASIX [Concomitant]
     Active Substance: FUROSEMIDE
     Route: 048
     Dates: start: 20200212
  5. ALLOPURINOL. [Concomitant]
     Active Substance: ALLOPURINOL
     Route: 048
  6. COTELLIC [Suspect]
     Active Substance: COBIMETINIB
     Dosage: NEXT DOSE OF 60 MG ON 12/FEB/2020
     Route: 048
  7. COTELLIC [Suspect]
     Active Substance: COBIMETINIB
     Indication: MALIGNANT MELANOMA
     Dosage: ONGOING: YES
     Route: 048
     Dates: start: 20190215
  8. ZELBORAF [Suspect]
     Active Substance: VEMURAFENIB
     Route: 048
     Dates: start: 20200212
  9. AMLODIPINE [Concomitant]
     Active Substance: AMLODIPINE BESYLATE
     Route: 048
     Dates: start: 20190515

REACTIONS (2)
  - Fall [Unknown]
  - Hip fracture [Unknown]
